FAERS Safety Report 16285555 (Version 1)
Quarter: 2019Q2

REPORT INFORMATION
  Report Type: Spontaneous
  Country: CN (occurrence: CN)
  Receive Date: 20190508
  Receipt Date: 20190508
  Transmission Date: 20190711
  Serious: Yes (Other)
  Sender: FDA-Public Use
  Company Number: CN-BAYER-2019-089678

PATIENT
  Age: 48 Year
  Sex: Female
  Weight: 45 kg

DRUGS (3)
  1. DOXOFYLLINE [Concomitant]
     Active Substance: DOXOFYLLINE
  2. AVELOX [Suspect]
     Active Substance: MOXIFLOXACIN HYDROCHLORIDE
     Indication: DRUG THERAPY
  3. AVELOX [Suspect]
     Active Substance: MOXIFLOXACIN HYDROCHLORIDE
     Indication: LUNG INFECTION
     Dosage: 0.4 G, QD
     Route: 041
     Dates: start: 20190403, end: 20190403

REACTIONS (4)
  - Delirium [Recovered/Resolved]
  - Nerve stimulation test abnormal [Recovered/Resolved]
  - Depressed level of consciousness [Recovered/Resolved]
  - Slow response to stimuli [Recovered/Resolved]

NARRATIVE: CASE EVENT DATE: 20190404
